FAERS Safety Report 8714063 (Version 3)
Quarter: 2012Q4

REPORT INFORMATION
  Report Type: Spontaneous
  Country: DK (occurrence: None)
  Receive Date: 20120724
  Receipt Date: 20120918
  Transmission Date: 20130627
  Serious: Yes (Death)
  Sender: FDA-Public Use
  Company Number: 2012MA008803

PATIENT
  Age: 79 Year
  Sex: Female

DRUGS (30)
  1. SPIRONOLACTONE [Suspect]
  2. CLARITHROMYCIN [Suspect]
     Indication: PNEUMONIA
     Dosage: 500 MG;BID;PO
     Route: 048
     Dates: start: 20120512, end: 20120521
  3. ZOCOR [Suspect]
  4. BUMETANIDE [Suspect]
  5. GENTAMICIN SULFATE [Concomitant]
  6. OMEPRAZOLE [Concomitant]
  7. ADENOSINE [Concomitant]
  8. FUROSEMIDE [Concomitant]
  9. DALTEPARIN SODIUM [Concomitant]
  10. CANDESARTAN CILEXETIL [Concomitant]
  11. AMOXICILLIN\CLAVULANATE POTASSIUM [Concomitant]
  12. TEICOPLANIN [Concomitant]
  13. PARACETAMOL [Concomitant]
  14. BISOPROLOL FUMARATE [Concomitant]
  15. HEPARIN [Concomitant]
  16. AMIODARONE HYDROCHLORIDE [Concomitant]
  17. CLOTRIMAZOLE [Concomitant]
  18. FORTISIP [Concomitant]
  19. METOCLOPRAMIDE [Concomitant]
  20. METHOTREXATE [Concomitant]
  21. FOLIC ACID [Concomitant]
  22. ADCAL-D3 [Concomitant]
  23. TRAMADOL HYDROCHLORIDE [Concomitant]
  24. ACETAMINOPHEN AND CODEINE PHOSPHATE [Concomitant]
  25. DIORALYTE [Concomitant]
  26. DICLOFENAC [Concomitant]
  27. WARFARIN SODIUM [Concomitant]
  28. AMOXICILLIN [Concomitant]
  29. CLARITHROMYCIN [Concomitant]
  30. TEICOPLANIN [Concomitant]

REACTIONS (10)
  - Stevens-Johnson syndrome [None]
  - Toxic epidermal necrolysis [None]
  - Atrial fibrillation [None]
  - Fluid overload [None]
  - Renal failure acute [None]
  - Haemoglobin decreased [None]
  - Pulmonary embolism [None]
  - Vasculitis [None]
  - Haemodialysis [None]
  - Hypersensitivity [None]
